FAERS Safety Report 8938251 (Version 1)
Quarter: 2012Q4

REPORT INFORMATION
  Report Type: 
  Country: US (occurrence: US)
  Receive Date: 20121130
  Receipt Date: 20121130
  Transmission Date: 20130627
  Serious: Yes (Other)
  Sender: FDA-Public Use
  Company Number: US-ELI_LILLY_AND_COMPANY-US201211006906

PATIENT
  Age: 62 None
  Sex: Male
  Weight: 87.08 kg

DRUGS (13)
  1. BYETTA [Suspect]
     Indication: TYPE 2 DIABETES MELLITUS
     Dosage: 5 ug, bid
     Route: 058
     Dates: start: 2007
  2. BYETTA [Suspect]
     Dosage: 10 ug, bid
     Route: 058
     Dates: end: 201210
  3. METFORMIN [Concomitant]
     Indication: TYPE 2 DIABETES MELLITUS
     Dosage: 850 mg, tid
     Route: 048
  4. JANUVIA [Concomitant]
     Indication: TYPE 2 DIABETES MELLITUS
     Dosage: 50 mg, qd
     Route: 048
     Dates: start: 201206
  5. SIMVASTATIN [Concomitant]
     Indication: BLOOD CHOLESTEROL
     Dosage: 20 mg, qd
     Route: 048
  6. SERTRALINE [Concomitant]
     Indication: DEPRESSION
     Dosage: 50 mg, unknown
     Route: 048
     Dates: start: 2009, end: 2011
  7. LOVAZA [Concomitant]
     Indication: FREE FATTY ACIDS
     Dosage: 4 g, qd
     Route: 048
  8. VITAMIN D [Concomitant]
     Dosage: 50000 u, qd
  9. VITAMIN C [Concomitant]
     Dosage: 500 mg, qd
     Route: 048
  10. CENTRUM SILVER [Concomitant]
     Dosage: 1 DF, qd
     Route: 048
  11. ASPIRIN [Concomitant]
     Dosage: 81 mg, qd
     Route: 048
  12. HUMALOG [Concomitant]
     Indication: INSULIN-REQUIRING TYPE 2 DIABETES MELLITUS
     Dosage: 24 u, tid
     Route: 058
  13. LANTUS [Concomitant]
     Indication: INSULIN-REQUIRING TYPE 2 DIABETES MELLITUS
     Dosage: 28 u, each evening
     Route: 058

REACTIONS (10)
  - Pancreatic carcinoma [Not Recovered/Not Resolved]
  - Metastases to liver [Not Recovered/Not Resolved]
  - Basal cell carcinoma [Unknown]
  - Chills [Recovered/Resolved]
  - Pain [Recovered/Resolved]
  - Musculoskeletal pain [Unknown]
  - Blood glucose abnormal [Not Recovered/Not Resolved]
  - Glycosylated haemoglobin increased [Not Recovered/Not Resolved]
  - Weight decreased [Unknown]
  - Abdominal discomfort [Unknown]
